FAERS Safety Report 4818009-2 (Version None)
Quarter: 2005Q4

REPORT INFORMATION
  Report Type: 
  Country: None (occurrence: None)
  Receive Date: 20051102
  Receipt Date: 20000111
  Transmission Date: 20060501
  Serious: Yes (Hospitalization)
  Sender: FDA-Public Use
  Company Number: US-ROCHE-225519

PATIENT
  Age: 57 Year
  Sex: Female
  Weight: 86.2 kg

DRUGS (3)
  1. XENICAL [Suspect]
     Indication: OBESITY
     Dosage: WITH MEALS.
     Route: 048
     Dates: start: 19991215, end: 20000309
  2. XENICAL [Suspect]
     Route: 048
     Dates: start: 20000313
  3. HORMONE REPLACEMENT [Concomitant]
     Indication: HORMONE REPLACEMENT THERAPY
     Dosage: TAKEN FOR YEARS.
     Route: 048

REACTIONS (5)
  - ABNORMAL FAECES [None]
  - DIVERTICULITIS [None]
  - DIVERTICULITIS INTESTINAL HAEMORRHAGIC [None]
  - STEATORRHOEA [None]
  - SWELLING FACE [None]
